FAERS Safety Report 19024180 (Version 1)
Quarter: 2021Q1

REPORT INFORMATION
  Report Type: Spontaneous
  Country: US (occurrence: US)
  Receive Date: 20210317
  Receipt Date: 20210317
  Transmission Date: 20210420
  Serious: No
  Sender: FDA-Public Use
  Company Number: US-009507513-2103USA004387

PATIENT
  Sex: Male

DRUGS (2)
  1. ALBUTEROL SULFATE. [Suspect]
     Active Substance: ALBUTEROL SULFATE
     Indication: CHRONIC OBSTRUCTIVE PULMONARY DISEASE
     Dosage: UNK
     Dates: start: 202012
  2. ANORO [Concomitant]
     Active Substance: UMECLIDINIUM BROMIDE\VILANTEROL TRIFENATATE

REACTIONS (5)
  - Device use issue [Unknown]
  - Incorrect dose administered by device [Unknown]
  - Product delivery mechanism issue [Unknown]
  - Device malfunction [Unknown]
  - Poor quality device used [Unknown]
